FAERS Safety Report 21508363 (Version 1)
Quarter: 2022Q4

REPORT INFORMATION
  Report Type: Spontaneous
  Country: US (occurrence: US)
  Receive Date: 20221026
  Receipt Date: 20221026
  Transmission Date: 20230113
  Serious: No
  Sender: FDA-Public Use
  Company Number: US-PFIZER INC-202201250327

PATIENT
  Age: 71 Year
  Sex: Male
  Weight: 78.93 kg

DRUGS (2)
  1. PAXLOVID [Suspect]
     Active Substance: NIRMATRELVIR\RITONAVIR
     Indication: COVID-19 treatment
     Dosage: TWO IN THE MORNING AND TWO IN THE EVENING WITH FOOD
     Dates: start: 20221020
  2. AMLODIPINE [Concomitant]
     Active Substance: AMLODIPINE BESYLATE
     Indication: Hypertension
     Dosage: 5 MG

REACTIONS (2)
  - Blood urine present [Unknown]
  - Dysuria [Unknown]

NARRATIVE: CASE EVENT DATE: 20221021
